FAERS Safety Report 20045306 (Version 1)
Quarter: 2021Q4

REPORT INFORMATION
  Report Type: Spontaneous
  Country: US (occurrence: US)
  Receive Date: 20211108
  Receipt Date: 20211108
  Transmission Date: 20220304
  Serious: Yes (Death)
  Sender: FDA-Public Use
  Company Number: US-LUPIN PHARMACEUTICALS INC.-2021-21699

PATIENT
  Age: 47 Year
  Sex: Female

DRUGS (10)
  1. CALCIUM [Suspect]
     Active Substance: CALCIUM
     Indication: Toxicity to various agents
     Dosage: UNK
     Route: 065
  2. GLUCAGON [Suspect]
     Active Substance: GLUCAGON
     Indication: Toxicity to various agents
     Dosage: UNK
     Route: 065
  3. INSULIN NOS [Suspect]
     Active Substance: INSULIN NOS
     Indication: Toxicity to various agents
     Dosage: UNK, HIGH-DOSE INSULIN EUGLYCAEMIC THERAPY
     Route: 065
  4. SODIUM BICARBONATE [Suspect]
     Active Substance: SODIUM BICARBONATE
     Indication: Toxicity to various agents
     Dosage: UNK
     Route: 065
  5. EPINEPHRINE [Suspect]
     Active Substance: EPINEPHRINE
     Indication: Toxicity to various agents
     Dosage: UNK
     Route: 065
  6. NOREPINEPHRINE [Suspect]
     Active Substance: NOREPINEPHRINE
     Indication: Toxicity to various agents
     Dosage: UNK
     Route: 065
  7. VASOPRESSIN [Suspect]
     Active Substance: VASOPRESSIN
     Indication: Toxicity to various agents
     Dosage: UNK
     Route: 065
  8. DOPAMINE [Suspect]
     Active Substance: DOPAMINE HYDROCHLORIDE
     Indication: Toxicity to various agents
     Dosage: UNK
     Route: 065
  9. DEXTROSE [Suspect]
     Active Substance: DEXTROSE
     Indication: Toxicity to various agents
     Dosage: UNK (MORE THAN 5%)
     Route: 065
  10. VERAPAMIL [Concomitant]
     Active Substance: VERAPAMIL HYDROCHLORIDE
     Indication: Product used for unknown indication
     Dosage: UNK
     Route: 065

REACTIONS (2)
  - Drug ineffective for unapproved indication [Fatal]
  - Off label use [Unknown]
